FAERS Safety Report 14774981 (Version 1)
Quarter: 2018Q2

REPORT INFORMATION
  Report Type: Spontaneous
  Country: US (occurrence: US)
  Receive Date: 20180412
  Receipt Date: 20180412
  Transmission Date: 20180711
  Serious: Yes (Other)
  Sender: FDA-Public Use
  Company Number: None

PATIENT
  Age: 10 Year
  Sex: Male
  Weight: 60.75 kg

DRUGS (4)
  1. CHILDRENS ADVIL [Suspect]
     Active Substance: IBUPROFEN
     Indication: BACK PAIN
     Dates: start: 20180411, end: 20180411
  2. XYZAL [Concomitant]
     Active Substance: LEVOCETIRIZINE DIHYDROCHLORIDE
  3. FLONASE [Concomitant]
     Active Substance: FLUTICASONE PROPIONATE
  4. FLINTSTONES GUMMIES [Concomitant]
     Active Substance: VITAMINS

REACTIONS (2)
  - Anaphylactic reaction [None]
  - Urticaria [None]

NARRATIVE: CASE EVENT DATE: 20180411
